FAERS Safety Report 20161909 (Version 3)
Quarter: 2022Q3

REPORT INFORMATION
  Report Type: Report from Study
  Country: US (occurrence: US)
  Receive Date: 20211208
  Receipt Date: 20220913
  Transmission Date: 20221027
  Serious: Yes (Hospitalization, Other)
  Sender: FDA-Public Use
  Company Number: US-TAKEDA-2021TUS076271

PATIENT
  Sex: Female
  Weight: 72 kg

DRUGS (21)
  1. HUMAN IMMUNOGLOBULIN G [Suspect]
     Active Substance: HUMAN IMMUNOGLOBULIN G
     Indication: Immunodeficiency common variable
     Dosage: 25 GRAM
     Route: 042
     Dates: start: 20100406
  2. HUMAN IMMUNOGLOBULIN G [Suspect]
     Active Substance: HUMAN IMMUNOGLOBULIN G
     Indication: Hypogammaglobulinaemia
  3. HUMAN IMMUNOGLOBULIN G [Suspect]
     Active Substance: HUMAN IMMUNOGLOBULIN G
     Indication: DiGeorge^s syndrome
  4. PREVACID [Concomitant]
     Active Substance: LANSOPRAZOLE
  5. ACETAMINOPHEN [Concomitant]
     Active Substance: ACETAMINOPHEN
  6. DIPHENHYDRAMINE [Concomitant]
     Active Substance: DIPHENHYDRAMINE
  7. SODIUM CHLORIDE [Concomitant]
     Active Substance: SODIUM CHLORIDE
  8. EPINEPHRINE [Concomitant]
     Active Substance: EPINEPHRINE
  9. XOPENEX [Concomitant]
     Active Substance: LEVALBUTEROL HYDROCHLORIDE
  10. HYDROCORTISONE [Concomitant]
     Active Substance: HYDROCORTISONE
  11. INSULIN NOS [Concomitant]
     Active Substance: INSULIN NOS
  12. ROSUVASTATIN [Concomitant]
     Active Substance: ROSUVASTATIN
  13. MURO 128 [Concomitant]
     Active Substance: SODIUM CHLORIDE
  14. FLUTICASONE [Concomitant]
     Active Substance: FLUTICASONE
  15. TYLENOL [Concomitant]
     Active Substance: ACETAMINOPHEN
  16. ALBUTEROL [Concomitant]
     Active Substance: ALBUTEROL
  17. ALLEGRA [Concomitant]
     Active Substance: FEXOFENADINE HYDROCHLORIDE
  18. ALTACE [Concomitant]
     Active Substance: RAMIPRIL
  19. ADVAIR HFA [Concomitant]
     Active Substance: FLUTICASONE PROPIONATE\SALMETEROL XINAFOATE
  20. FLUTICASONE PROPIONATE [Concomitant]
     Active Substance: FLUTICASONE PROPIONATE
  21. ROSUVASTATIN CALCIUM [Concomitant]
     Active Substance: ROSUVASTATIN CALCIUM

REACTIONS (6)
  - Adrenocortical insufficiency acute [Unknown]
  - Knee arthroplasty [Unknown]
  - Confusional state [Unknown]
  - Disorientation [Unknown]
  - Weight increased [Unknown]
  - Therapeutic procedure [Unknown]
